FAERS Safety Report 5226144-2 (Version None)
Quarter: 2007Q1

REPORT INFORMATION
  Report Type: 
  Country: None (occurrence: None)
  Receive Date: 20070201
  Receipt Date: 20070126
  Transmission Date: 20070707
  Serious: Yes (Other)
  Sender: FDA-Public Use
  Company Number: DE-GLAXOSMITHKLINE-D0052071A

PATIENT
  Age: 56 Year
  Sex: Male

DRUGS (5)
  1. AUGMENTIN '125' [Suspect]
     Dosage: 1000MG TWICE PER DAY
     Route: 048
     Dates: start: 20070115, end: 20070119
  2. GODAMED [Concomitant]
     Dosage: 100MG PER DAY
     Route: 048
  3. CYANOCOBALAMIN + FOLIC ACID + PYRIDOXINE HYDROCHLORIDE [Concomitant]
     Dosage: 1TAB TWICE PER DAY
     Route: 048
  4. ATORVASTATIN CALCIUM [Concomitant]
     Dosage: 1TAB PER DAY
     Route: 048
  5. JODETTEN DEPOT [Concomitant]
     Dosage: 2MG WEEKLY
     Route: 048

REACTIONS (3)
  - COLITIS [None]
  - DIARRHOEA [None]
  - PRURITUS ANI [None]
